FAERS Safety Report 12180492 (Version 1)
Quarter: 2016Q1

REPORT INFORMATION
  Report Type: Spontaneous
  Country: US (occurrence: None)
  Receive Date: 20160314
  Receipt Date: 20160314
  Transmission Date: 20160526
  Serious: Yes (Other)
  Sender: FDA-Public Use
  Company Number: None

PATIENT
  Age: 69 Year
  Sex: Female
  Weight: 113.4 kg

DRUGS (7)
  1. OMNEPRAZOLE [Concomitant]
  2. METFORMIN [Suspect]
     Active Substance: METFORMIN HYDROCHLORIDE
     Indication: TYPE 2 DIABETES MELLITUS
     Dosage: 1 PILL TWICE DAILY TAKEN BY MOUTH
     Route: 048
     Dates: start: 20160228, end: 20160309
  3. ASPIRING [Concomitant]
     Active Substance: ASPIRIN
  4. LYSINIPRIL/HCT [Concomitant]
  5. GLUCOSAMINE [Concomitant]
     Active Substance: GLUCOSAMINE
  6. EVENING PRIMROSE OIL [Concomitant]
     Active Substance: EVENING PRIMROSE OIL
  7. L-LYSINE [Concomitant]
     Active Substance: LYSINE

REACTIONS (3)
  - Diabetes mellitus inadequate control [None]
  - Product substitution issue [None]
  - Blood glucose increased [None]

NARRATIVE: CASE EVENT DATE: 20160309
